FAERS Safety Report 25752996 (Version 1)
Quarter: 2025Q3

REPORT INFORMATION
  Report Type: Spontaneous
  Country: EU (occurrence: EU)
  Receive Date: 20250902
  Receipt Date: 20250902
  Transmission Date: 20251021
  Serious: Yes (Hospitalization)
  Sender: JOHNSON AND JOHNSON
  Company Number: EU-JNJFOC-20250831038

PATIENT
  Sex: Female

DRUGS (2)
  1. RYBREVANT [Suspect]
     Active Substance: AMIVANTAMAB-VMJW
     Indication: Non-small cell lung cancer metastatic
     Route: 065
     Dates: start: 20250806
  2. RYBREVANT [Suspect]
     Active Substance: AMIVANTAMAB-VMJW
     Route: 065
     Dates: start: 20250807

REACTIONS (8)
  - Epistaxis [Unknown]
  - Adverse event [Unknown]
  - Vomiting [Unknown]
  - Abdominal pain [Unknown]
  - Mucosal inflammation [Unknown]
  - Blood disorder [Unknown]
  - Hyponatraemia [Unknown]
  - Chest pain [Unknown]

NARRATIVE: CASE EVENT DATE: 20250812
